FAERS Safety Report 5473940-2 (Version None)
Quarter: 2007Q3

REPORT INFORMATION
  Report Type: 
  Country: None (occurrence: None)
  Receive Date: 20070831
  Receipt Date: 20070608
  Transmission Date: 20080115
  Serious: No
  Sender: FDA-Public Use
  Company Number: 242699

PATIENT
  Age: 79 Year
  Sex: Female

DRUGS (2)
  1. LUCENTIS [Suspect]
     Indication: MACULAR DEGENERATION
     Dates: start: 20070503
  2. BLOOD PRESSURE MEDICATION NOS (ANTIHYPERTENSIVE NOS) [Concomitant]

REACTIONS (2)
  - ABNORMAL SENSATION IN EYE [None]
  - LACRIMATION INCREASED [None]
